FAERS Safety Report 6896712 (Version 3)
Quarter: 2012Q4

REPORT INFORMATION
  Report Type: Spontaneous
  Country: US (occurrence: None)
  Receive Date: 20090121
  Receipt Date: 20120828
  Transmission Date: 20130627
  Serious: Yes (Death)
  Sender: FDA-Public Use
  Company Number: 2009SS000001

PATIENT
  Age: 53 Year
  Sex: Male

DRUGS (1)
  1. MYOBLOC [Suspect]
     Indication: DYSTONIA
     Dosage: 12000 U;X1;IM
     Route: 030
     Dates: start: 20080903, end: 20080903

REACTIONS (2)
  - Pneumonia aspiration [None]
  - Neoplasm malignant [None]
